FAERS Safety Report 8386598-X (Version None)
Quarter: 2012Q2

REPORT INFORMATION
  Report Type: 
  Country: None (occurrence: None)
  Receive Date: 20120525
  Receipt Date: 20120123
  Transmission Date: 20120825
  Serious: No
  Sender: FDA-Public Use
  Company Number: US-GLAXOSMITHKLINE-A0962710A

PATIENT
  Age: 35 Year
  Sex: Male

DRUGS (2)
  1. FLOVENT [Concomitant]
     Dosage: 1PUFF TWICE PER DAY
  2. VERAMYST [Suspect]
     Indication: ASTHMA
     Dosage: 1SPR AT NIGHT
     Route: 045
     Dates: start: 20111201, end: 20120122

REACTIONS (3)
  - EPISTAXIS [None]
  - NASAL OEDEMA [None]
  - NASAL DISCOMFORT [None]
